FAERS Safety Report 10872106 (Version 4)
Quarter: 2015Q2

REPORT INFORMATION
  Report Type: Spontaneous
  Country: US (occurrence: US)
  Receive Date: 20150226
  Receipt Date: 20150504
  Transmission Date: 20150821
  Serious: Yes (Death, Hospitalization)
  Sender: FDA-Public Use
  Company Number: US-JNJFOC-20150219177

PATIENT
  Age: 71 Year
  Sex: Male
  Weight: 65 kg

DRUGS (19)
  1. CYANOCOBALAMINE [Concomitant]
     Active Substance: CYANOCOBALAMIN
  2. FENTANYL. [Concomitant]
     Active Substance: FENTANYL
  3. KEPPRA [Concomitant]
     Active Substance: LEVETIRACETAM
  4. CALCIUM GLUCONATE. [Concomitant]
     Active Substance: CALCIUM GLUCONATE
  5. CORTEF [Concomitant]
     Active Substance: HYDROCORTISONE
  6. DEXAMETHASONE. [Concomitant]
     Active Substance: DEXAMETHASONE
  7. LIDODERM [Concomitant]
     Active Substance: LIDOCAINE
  8. IMBRUVICA [Suspect]
     Active Substance: IBRUTINIB
     Indication: PLASMA CELL MYELOMA
     Route: 048
     Dates: start: 20150206, end: 20150223
  9. LASIX [Concomitant]
     Active Substance: FUROSEMIDE
  10. VENTOLIN [Concomitant]
     Active Substance: ALBUTEROL SULFATE
  11. CELEXA [Concomitant]
     Active Substance: CITALOPRAM HYDROBROMIDE
  12. DULCOLAX [Concomitant]
     Active Substance: BISACODYL OR DOCUSATE SODIUM
  13. DRISDOL [Concomitant]
     Active Substance: ERGOCALCIFEROL
  14. NEURONTIN [Concomitant]
     Active Substance: GABAPENTIN
  15. ALTEPLASE [Concomitant]
     Active Substance: ALTEPLASE
  16. DILAUDID [Concomitant]
     Active Substance: HYDROMORPHONE HYDROCHLORIDE
  17. MAGNESIUM LACTATE [Concomitant]
     Active Substance: MAGNESIUM LACTATE
  18. ROCEPHIN [Concomitant]
     Active Substance: CEFTRIAXONE SODIUM
  19. ZOVIRAX [Concomitant]
     Active Substance: ACYCLOVIR

REACTIONS (12)
  - Sepsis [Unknown]
  - Acute respiratory failure [Unknown]
  - Anaemia [Unknown]
  - Drug ineffective [Unknown]
  - Pancytopenia [Unknown]
  - Haematuria [Unknown]
  - Atrial fibrillation [Unknown]
  - Encephalopathy [Unknown]
  - Acute kidney injury [Not Recovered/Not Resolved]
  - Pneumonia [Not Recovered/Not Resolved]
  - Upper gastrointestinal haemorrhage [Unknown]
  - Disease progression [Fatal]

NARRATIVE: CASE EVENT DATE: 201502
